FAERS Safety Report 8381828-2 (Version None)
Quarter: 2012Q2

REPORT INFORMATION
  Report Type: 
  Country: None (occurrence: None)
  Receive Date: 20120522
  Receipt Date: 20120514
  Transmission Date: 20120825
  Serious: Yes (Hospitalization, Other)
  Sender: FDA-Public Use
  Company Number: ADR-2011-11403

PATIENT
  Age: 36 Year
  Sex: Female

DRUGS (3)
  1. MORPHINE [Concomitant]
  2. BACLOFEN [Suspect]
     Indication: LUMBAR RADICULOPATHY
     Dosage: 50 MCG, DAILY, INTRA
     Route: 037
  3. BACLOFEN [Suspect]
     Indication: PAIN
     Dosage: 50 MCG, DAILY, INTRA
     Route: 037

REACTIONS (10)
  - PAIN [None]
  - WITHDRAWAL SYNDROME [None]
  - TREMOR [None]
  - IRRITABILITY [None]
  - SOMNOLENCE [None]
  - SUICIDAL IDEATION [None]
  - WEIGHT DECREASED [None]
  - OVERDOSE [None]
  - NAUSEA [None]
  - DEVICE MALFUNCTION [None]
